FAERS Safety Report 19122140 (Version 2)
Quarter: 2021Q2

REPORT INFORMATION
  Report Type: Spontaneous
  Country: US (occurrence: US)
  Receive Date: 20210412
  Receipt Date: 20210427
  Transmission Date: 20210717
  Serious: Yes (Other)
  Sender: FDA-Public Use
  Company Number: US-APOTEX-2021AP008658

PATIENT
  Age: 10 Year
  Sex: Male

DRUGS (1)
  1. GUANFACINE EXTENDED RELEASE TABLET [Suspect]
     Active Substance: GUANFACINE
     Indication: PRODUCT USED FOR UNKNOWN INDICATION
     Dosage: UNK COMPLAINT MATERIAL?68364
     Route: 065

REACTIONS (10)
  - Schizophrenia [Unknown]
  - Dizziness [Unknown]
  - Head injury [Unknown]
  - Gait disturbance [Unknown]
  - Recalled product [Unknown]
  - Dysstasia [Unknown]
  - Hypotension [Unknown]
  - Syncope [Unknown]
  - Muscular weakness [Unknown]
  - Loss of consciousness [Unknown]

NARRATIVE: CASE EVENT DATE: 202103
